FAERS Safety Report 8523938-2 (Version None)
Quarter: 2012Q3

REPORT INFORMATION
  Report Type: 
  Country: None (occurrence: None)
  Receive Date: 20120720
  Receipt Date: 20120716
  Transmission Date: 20120928
  Serious: Yes (Other)
  Sender: FDA-Public Use
  Company Number: US-BRISTOL-MYERS SQUIBB COMPANY-16769689

PATIENT
  Age: 47 Year
  Sex: Female

DRUGS (2)
  1. ARIPIPRAZOLE [Suspect]
  2. CLOZAPINE [Concomitant]
     Dosage: DOSE INCREASED TO 800MG/D

REACTIONS (2)
  - DELUSION [None]
  - HALLUCINATION, AUDITORY [None]
